FAERS Safety Report 13963853 (Version 4)
Quarter: 2017Q4

REPORT INFORMATION
  Report Type: Spontaneous
  Country: DE (occurrence: DE)
  Receive Date: 20170913
  Receipt Date: 20171009
  Transmission Date: 20180320
  Serious: Yes (Other)
  Sender: FDA-Public Use
  Company Number: DE-ROCHE-1991051

PATIENT
  Age: 50 Year
  Sex: Female
  Weight: 116.6 kg

DRUGS (2)
  1. HERCEPTIN [Suspect]
     Active Substance: TRASTUZUMAB
     Indication: HER-2 POSITIVE BREAST CANCER
     Dosage: 50 ML IN 250 ML?DRUG WAS APPLICATED FROM 13:40 TO 14:30 O COLCK
     Route: 042
  2. PERJETA [Suspect]
     Active Substance: PERTUZUMAB
     Indication: HER-2 POSITIVE BREAST CANCER
     Dosage: (250 ML = 932.8) 840 MG??DRUG WAS APPLICATED FROM 12:25 TO 13:25 O CLOCK
     Route: 042

REACTIONS (4)
  - Dyspnoea [Recovered/Resolved]
  - Nausea [Recovered/Resolved]
  - Tremor [Recovered/Resolved]
  - Hyperventilation [Recovered/Resolved]
